FAERS Safety Report 14331689 (Version 2)
Quarter: 2018Q1

REPORT INFORMATION
  Report Type: Spontaneous
  Country: GB (occurrence: GB)
  Receive Date: 20171228
  Receipt Date: 20180105
  Transmission Date: 20180509
  Serious: Yes (Hospitalization, Other)
  Sender: FDA-Public Use
  Company Number: GB-MYLANLABS-2017M1081796

PATIENT
  Age: 55 Year
  Sex: Male

DRUGS (1)
  1. CLOZARIL [Suspect]
     Active Substance: CLOZAPINE
     Indication: SCHIZOPHRENIA
     Dosage: UNK
     Route: 048
     Dates: start: 19950710, end: 201712

REACTIONS (10)
  - Pneumonia [Unknown]
  - White blood cell count increased [Recovered/Resolved]
  - Tibia fracture [Recovering/Resolving]
  - Vomiting [Unknown]
  - Neutrophil count increased [Recovered/Resolved]
  - Inflammatory marker increased [Recovering/Resolving]
  - Pyrexia [Unknown]
  - Urinary tract infection [Unknown]
  - White blood cell count decreased [Recovered/Resolved]
  - Platelet count decreased [Unknown]

NARRATIVE: CASE EVENT DATE: 201712
